FAERS Safety Report 7346818-7 (Version None)
Quarter: 2011Q1

REPORT INFORMATION
  Report Type: 
  Country: None (occurrence: None)
  Receive Date: 20110311
  Receipt Date: 20100923
  Transmission Date: 20110831
  Serious: Yes (Hospitalization)
  Sender: FDA-Public Use
  Company Number: DE-BAYER-201037901GPV

PATIENT
  Sex: Male
  Weight: 11 kg

DRUGS (9)
  1. KOGENATE [Suspect]
     Route: 042
     Dates: start: 20100830
  2. KOGENATE [Suspect]
     Route: 042
     Dates: start: 20100722
  3. KOGENATE [Suspect]
     Indication: PROPHYLAXIS
     Route: 042
     Dates: start: 20100706
  4. KOGENATE [Suspect]
     Route: 042
     Dates: start: 20100713
  5. KOGENATE [Suspect]
     Route: 042
     Dates: start: 20100817
  6. KOGENATE [Suspect]
     Route: 042
     Dates: start: 20100824
  7. KOGENATE [Suspect]
     Route: 042
     Dates: start: 20100830
  8. KOGENATE [Suspect]
     Route: 042
     Dates: start: 20100810
  9. KOGENATE [Suspect]
     Route: 042
     Dates: start: 20100826

REACTIONS (1)
  - FACTOR VIII INHIBITION [None]
